FAERS Safety Report 16562414 (Version 2)
Quarter: 2019Q3

REPORT INFORMATION
  Report Type: Spontaneous
  Country: JP (occurrence: JP)
  Receive Date: 20190711
  Receipt Date: 20190717
  Transmission Date: 20191004
  Serious: Yes (Other)
  Sender: FDA-Public Use
  Company Number: PHJP2019JP008543

PATIENT
  Age: 78 Year
  Sex: Male

DRUGS (4)
  1. RITUXAN [Concomitant]
     Active Substance: RITUXIMAB
     Indication: PRODUCT USED FOR UNKNOWN INDICATION
     Dosage: UNK (ADMINISTRATED 4 TIMES)
     Route: 065
  2. REVOLADE TAB [Suspect]
     Active Substance: ELTROMBOPAG
     Dosage: 37.5 MG, UNK
     Route: 048
     Dates: end: 201905
  3. REVOLADE TAB [Suspect]
     Active Substance: ELTROMBOPAG
     Indication: IMMUNE THROMBOCYTOPENIC PURPURA
     Dosage: 12.5 MG, UNK
     Route: 048
     Dates: start: 201704
  4. REVOLADE TAB [Suspect]
     Active Substance: ELTROMBOPAG
     Dosage: 25 MG, UNK
     Route: 048

REACTIONS (3)
  - Dementia [Not Recovered/Not Resolved]
  - Platelet count decreased [Recovered/Resolved]
  - Platelet count decreased [Unknown]

NARRATIVE: CASE EVENT DATE: 201903
